FAERS Safety Report 9240557 (Version 2)
Quarter: 2013Q2

REPORT INFORMATION
  Report Type: Spontaneous
  Country: CO (occurrence: CO)
  Receive Date: 20130418
  Receipt Date: 20130424
  Transmission Date: 20140414
  Serious: Yes (Hospitalization)
  Sender: FDA-Public Use
  Company Number: CO-PFIZER INC-2013119312

PATIENT
  Age: 7 Year
  Sex: Female

DRUGS (3)
  1. GENOTROPIN [Suspect]
     Indication: BODY HEIGHT BELOW NORMAL
     Dosage: 0.8MG FROM MONDAY TO SATURDAY AND 0.5MG ON SUNDAY, 1X/DAY
     Route: 058
     Dates: start: 2012
  2. GENOTROPIN [Suspect]
     Indication: HYDROCEPHALUS
  3. GENOTROPIN [Suspect]
     Indication: MENINGOMYELOCELE

REACTIONS (2)
  - Anal fistula [Recovering/Resolving]
  - Off label use [Unknown]
